FAERS Safety Report 24637934 (Version 2)
Quarter: 2024Q4

REPORT INFORMATION
  Report Type: Spontaneous
  Country: US (occurrence: US)
  Receive Date: 20241119
  Receipt Date: 20241119
  Transmission Date: 20250114
  Serious: Yes (Other)
  Sender: AMGEN
  Company Number: US-AMGEN-USASP2024225839

PATIENT
  Age: 19 Year
  Sex: Female

DRUGS (2)
  1. INFLIXIMAB [Suspect]
     Active Substance: INFLIXIMAB
     Indication: Transplant rejection
     Dosage: UNK
     Route: 065
  2. Immunoglobulin [Concomitant]
     Route: 040

REACTIONS (7)
  - Cushing^s syndrome [Unknown]
  - Type 1 diabetes mellitus [Unknown]
  - Transplant failure [Unknown]
  - Drug ineffective [Unknown]
  - Diarrhoea [Unknown]
  - Ulcer [Unknown]
  - Off label use [Unknown]
